FAERS Safety Report 9097982 (Version 2)
Quarter: 2013Q1

REPORT INFORMATION
  Report Type: Spontaneous
  Country: JP (occurrence: JP)
  Receive Date: 20130212
  Receipt Date: 20130219
  Transmission Date: 20140127
  Serious: Yes (Other)
  Sender: FDA-Public Use
  Company Number: JP-PFIZER INC-2013050048

PATIENT
  Age: 31 Year
  Sex: Male

DRUGS (1)
  1. UNASYN-S [Suspect]
     Indication: PNEUMONIA ASPIRATION
     Dosage: 3 G, 1X/DAY
     Route: 041

REACTIONS (2)
  - Rhabdomyolysis [Unknown]
  - Psychotic disorder [Recovered/Resolved]
